FAERS Safety Report 22742518 (Version 2)
Quarter: 2023Q4

REPORT INFORMATION
  Report Type: Report from Study
  Country: AT (occurrence: AT)
  Receive Date: 20230724
  Receipt Date: 20231115
  Transmission Date: 20240110
  Serious: Yes (Hospitalization, Other)
  Sender: FDA-Public Use
  Company Number: AT-ROCHE-3226138

PATIENT
  Age: 64 Year
  Sex: Female

DRUGS (64)
  1. SACITUZUMAB GOVITECAN-HZIY [Suspect]
     Active Substance: SACITUZUMAB GOVITECAN-HZIY
     Indication: HER2 positive breast cancer
     Dosage: 10 MG, D1+D8, Q21D
     Route: 065
     Dates: start: 20221207, end: 20230105
  2. PERTUZUMAB\TRASTUZUMAB [Suspect]
     Active Substance: PERTUZUMAB\TRASTUZUMAB
     Indication: HER2 positive breast cancer
     Route: 058
     Dates: start: 20220627, end: 20220818
  3. TRASTUZUMAB [Suspect]
     Active Substance: TRASTUZUMAB
     Indication: HER2 positive breast cancer
     Dosage: 510 MG, Q3WK
     Route: 042
     Dates: start: 20190315, end: 20200103
  4. TRASTUZUMAB [Suspect]
     Active Substance: TRASTUZUMAB
     Dosage: 680 MG
     Route: 042
     Dates: start: 20190315, end: 20190315
  5. TRASTUZUMAB [Suspect]
     Active Substance: TRASTUZUMAB
     Dosage: 510 MG, Q3WK
     Route: 042
     Dates: start: 20190403, end: 20200103
  6. TRASTUZUMAB [Suspect]
     Active Substance: TRASTUZUMAB
     Dosage: 600 MG, Q3WK
     Route: 058
     Dates: start: 20201021, end: 20210429
  7. FAM-TRASTUZUMAB DERUXTECAN-NXKI [Suspect]
     Active Substance: FAM-TRASTUZUMAB DERUXTECAN-NXKI
     Indication: HER2 positive breast cancer
     Dosage: 4.4 MG/KG, Q3WK
     Route: 042
     Dates: start: 20210721, end: 20210811
  8. FAM-TRASTUZUMAB DERUXTECAN-NXKI [Suspect]
     Active Substance: FAM-TRASTUZUMAB DERUXTECAN-NXKI
     Dosage: 3.2 MG/KG, Q3WK
     Route: 042
     Dates: start: 20220302, end: 20220512
  9. FAM-TRASTUZUMAB DERUXTECAN-NXKI [Suspect]
     Active Substance: FAM-TRASTUZUMAB DERUXTECAN-NXKI
     Dosage: 4.4 MG/KG, Q3WK
     Route: 042
     Dates: start: 20220118, end: 20220209
  10. FAM-TRASTUZUMAB DERUXTECAN-NXKI [Suspect]
     Active Substance: FAM-TRASTUZUMAB DERUXTECAN-NXKI
     Dosage: 5.4 MG/KG, Q3WK
     Route: 042
     Dates: start: 20210901, end: 20211228
  11. FAM-TRASTUZUMAB DERUXTECAN-NXKI [Suspect]
     Active Substance: FAM-TRASTUZUMAB DERUXTECAN-NXKI
     Dosage: 5.4 MG/KG, Q3WK
     Route: 042
     Dates: start: 20210628, end: 20210628
  12. ADO-TRASTUZUMAB EMTANSINE [Suspect]
     Active Substance: ADO-TRASTUZUMAB EMTANSINE
     Indication: HER2 positive breast cancer
     Dosage: 292 MG, Q3WK
     Route: 042
     Dates: start: 20200129, end: 20200826
  13. ERIBULIN MESYLATE [Suspect]
     Active Substance: ERIBULIN MESYLATE
     Indication: HER2 positive breast cancer
     Dosage: D1+D8. Q21D
     Route: 042
     Dates: start: 20230209, end: 20230322
  14. VINORELBINE [Suspect]
     Active Substance: VINORELBINE TARTRATE
     Indication: HER2 positive breast cancer
     Dosage: 58 MG, Q3WK
     Route: 042
     Dates: start: 20190918, end: 20200103
  15. VINORELBINE [Suspect]
     Active Substance: VINORELBINE TARTRATE
     Dosage: 58 MG, Q3WK
     Route: 042
     Dates: start: 20190315, end: 20190625
  16. NAVELBINE [Suspect]
     Active Substance: VINORELBINE TARTRATE
     Indication: HER2 positive breast cancer
     Dosage: 58 MG, Q3WK
     Route: 042
     Dates: start: 20190918, end: 20200103
  17. NAVELBINE [Suspect]
     Active Substance: VINORELBINE TARTRATE
     Dosage: 58 MG, Q3WK
     Route: 042
     Dates: start: 20190315, end: 20190625
  18. HERCEPTIN [Suspect]
     Active Substance: TRASTUZUMAB
     Indication: HER2 positive breast cancer
     Route: 042
     Dates: start: 20190315, end: 20190315
  19. HERCEPTIN [Suspect]
     Active Substance: TRASTUZUMAB
     Dosage: MOST RECENT DOSE PRIOR TO AE 21/OCT/2020
     Route: 042
     Dates: start: 20190315, end: 20200103
  20. HERCEPTIN [Suspect]
     Active Substance: TRASTUZUMAB
     Dosage: MOST RECENT DOSE PRIOR TO AE 21/OCT/2020
     Route: 042
     Dates: start: 20190403, end: 20200103
  21. CAPECITABINE [Suspect]
     Active Substance: CAPECITABINE
     Indication: HER2 positive breast cancer
     Dosage: FREQUENCY: OTHER MOST RECENT DOSE PRIOR TO THE EVENT: 19/JAN/2021D1-14. Q21D
     Route: 048
     Dates: start: 20210119, end: 20210522
  22. CAPECITABINE [Suspect]
     Active Substance: CAPECITABINE
     Dosage: 3500 MG
     Route: 048
     Dates: start: 20201031, end: 20201120
  23. CAPECITABINE [Suspect]
     Active Substance: CAPECITABINE
     Dosage: 3000 MG
     Route: 048
     Dates: start: 20201121, end: 20201218
  24. XELODA [Suspect]
     Active Substance: CAPECITABINE
     Indication: HER2 positive breast cancer
     Dosage: MOST RECENT DOSE PRIOR TO EVENT:19/JAN/2021D1-D14, Q21D
     Route: 048
     Dates: start: 20210119, end: 20210522
  25. XELODA [Suspect]
     Active Substance: CAPECITABINE
     Dosage: MOST RECENT DOSE PRIOR TO EVENT:19/JAN/2021D1-D14, Q21D
     Route: 048
     Dates: start: 20201031, end: 20201120
  26. XELODA [Suspect]
     Active Substance: CAPECITABINE
     Dosage: MOST RECENT DOSE PRIOR TO EVENT:19/JAN/2021D1-D14, Q21D
     Route: 048
     Dates: start: 20201121, end: 20201218
  27. PERJETA [Suspect]
     Active Substance: PERTUZUMAB
     Indication: HER2 positive breast cancer
     Route: 042
     Dates: start: 20190315, end: 20190315
  28. PERJETA [Suspect]
     Active Substance: PERTUZUMAB
     Route: 042
     Dates: start: 20190403, end: 20200103
  29. PERJETA [Suspect]
     Active Substance: PERTUZUMAB
     Dosage: MOST RECENT DOSE PRIOR TO AE
     Route: 042
     Dates: start: 20200103
  30. PERJETA [Suspect]
     Active Substance: PERTUZUMAB
     Dosage: MOST RECENT DOSE PRIOR TO AE 03/JAN/2020
     Route: 042
     Dates: start: 20190315
  31. HALAVEN [Suspect]
     Active Substance: ERIBULIN MESYLATE
     Indication: HER2 positive breast cancer
     Dosage: D1+D8. Q21D
     Route: 042
     Dates: start: 20230209, end: 20230322
  32. PHESGO [Suspect]
     Active Substance: HYALURONIDASE-ZZXF\PERTUZUMAB\TRASTUZUMAB
     Indication: HER2 positive breast cancer
     Dosage: 600 MG, Q3WK
     Route: 058
     Dates: start: 20220627, end: 20220818
  33. TUCATINIB [Suspect]
     Active Substance: TUCATINIB
     Indication: HER2 positive breast cancer
     Route: 048
     Dates: start: 20210509, end: 20210528
  34. TUCATINIB [Suspect]
     Active Substance: TUCATINIB
     Route: 048
     Dates: start: 20210108, end: 20210428
  35. TUCATINIB [Suspect]
     Active Substance: TUCATINIB
     Route: 048
     Dates: start: 20201120, end: 20210108
  36. DOXORUBICIN [Suspect]
     Active Substance: DOXORUBICIN
     Indication: HER2 positive breast cancer
     Route: 042
     Dates: start: 20220627, end: 20220818
  37. PERTUZUMAB [Suspect]
     Active Substance: PERTUZUMAB
     Indication: HER2 positive breast cancer
     Route: 042
     Dates: start: 20190315, end: 20190315
  38. PERTUZUMAB [Suspect]
     Active Substance: PERTUZUMAB
     Route: 042
     Dates: start: 20190403, end: 20200103
  39. PERTUZUMAB [Suspect]
     Active Substance: PERTUZUMAB
     Dosage: 420 MG, Q3WK
     Route: 042
     Dates: start: 20190315
  40. DEXAMETHASONE [Concomitant]
     Active Substance: DEXAMETHASONE
     Indication: Prophylaxis
     Dosage: ONGOING = CHECKEDD1,2 AND 3 OF EACH CYCLE OF TDXT
     Dates: start: 20210628, end: 20220514
  41. DEXAMETHASONE [Concomitant]
     Active Substance: DEXAMETHASONE
     Dosage: ONGOING = CHECKEDD1,2 AND 3 OF EACH CYCLE OF TDXT
     Dates: start: 20221208, end: 20230107
  42. DEXAMETHASONE [Concomitant]
     Active Substance: DEXAMETHASONE
     Dosage: DAY 1 OF EACH CYCLE OF SACITUZUMAB-GOVIT
     Dates: start: 20221207, end: 20230105
  43. DEXAMETHASONE [Concomitant]
     Active Substance: DEXAMETHASONE
     Dosage: DAY 1 OF EACH CYCLE OF SACITUZUMAB-GOVIT
     Dates: start: 20230209
  44. AMOXICILLIN\CLAVULANATE POTASSIUM [Concomitant]
     Active Substance: AMOXICILLIN\CLAVULANATE POTASSIUM
     Dosage: 16 OCT 2019 } EXANTHEMA AREA OF CLAVICULA
     Dates: start: 20191030, end: 20191107
  45. EMEND [Concomitant]
     Active Substance: APREPITANT
     Indication: Nausea
     Dosage: ONGOING = CHECKED, D1
     Dates: start: 20210722
  46. EMEND [Concomitant]
     Active Substance: APREPITANT
     Dosage: ONGOING = CHECKEDD1-14
     Dates: start: 20210721
  47. ZOFRAN [Concomitant]
     Active Substance: ONDANSETRON HYDROCHLORIDE
     Indication: Prophylaxis
     Dosage: ONGOING = CHECKEDD1 AND D2 OF EACH CYCLE OF CAELYX
     Dates: start: 20221207, end: 20230105
  48. ZOFRAN [Concomitant]
     Active Substance: ONDANSETRON HYDROCHLORIDE
     Dosage: ONGOING = CHECKED
     Dates: start: 20190315
  49. PREDNISOLONE SODIUM SUCCINATE [Concomitant]
     Active Substance: PREDNISOLONE SODIUM SUCCINATE
     Indication: Prophylaxis
     Dosage: D1 OF EACH CYCLE OF CAELYX
     Dates: start: 20220627, end: 20220915
  50. LOPERAMIDE HYDROCHLORIDE [Concomitant]
     Active Substance: LOPERAMIDE HYDROCHLORIDE
     Indication: Prophylaxis
     Dosage: ONGOING = CHECKED
     Dates: start: 20190315
  51. POLYETHYLENE GLYCOL 3350\POTASSIUM CHLORIDE\SODIUM BICARBONATE\SODIUM [Concomitant]
     Active Substance: POLYETHYLENE GLYCOL 3350\POTASSIUM CHLORIDE\SODIUM BICARBONATE\SODIUM CHLORIDE
     Indication: Prophylaxis
     Dosage: ONGOING = CHECKEDSACHET
     Dates: start: 20210722
  52. APREPITANT [Concomitant]
     Active Substance: APREPITANT
     Dosage: ONGOING = CHECKEDD1 OF EACH CYCLE OF TDXT
     Dates: start: 20210721, end: 20220512
  53. APREPITANT [Concomitant]
     Active Substance: APREPITANT
     Dosage: ONGOING = CHECKEDD2+D3 OF EACH CYCLE OF TDXT
     Dates: start: 20210722, end: 20220514
  54. ESOMEPRAZOLE [Concomitant]
     Active Substance: ESOMEPRAZOLE
     Indication: Prophylaxis
     Dosage: ONGOING = CHECKED
     Dates: start: 20190726
  55. ESOMEPRAZOLE [Concomitant]
     Active Substance: ESOMEPRAZOLE
     Indication: Abdominal pain upper
     Dosage: ONGOING = CHECKED
     Dates: start: 20211215
  56. SUCRALFATE [Concomitant]
     Active Substance: SUCRALFATE
     Indication: Prophylaxis
     Dosage: ONGOING = CHECKED
     Dates: start: 20190403
  57. ZYPREXA [Concomitant]
     Active Substance: OLANZAPINE
     Indication: Nausea
     Dosage: ONGOING = CHECKED, D14
     Dates: start: 20210721
  58. DIPHENHYDRAMINE [Concomitant]
     Active Substance: DIPHENHYDRAMINE
     Indication: Prophylaxis
     Dosage: DAY 1 OF EACH CYCLE OF SACITUZUMAB-GOV
     Dates: start: 20221207, end: 20230105
  59. METOCLOPRAMIDE HYDROCHLORIDE [Concomitant]
     Active Substance: METOCLOPRAMIDE HYDROCHLORIDE
     Indication: Nausea
     Dosage: ONGOING = CHECKED
     Dates: start: 20210708
  60. ACETAMINOPHEN [Concomitant]
     Active Substance: ACETAMINOPHEN
     Indication: Prophylaxis
     Dosage: DAY 1 OF EACH CYCLE OF SACITUZUMAB-GOV
     Dates: start: 20221207, end: 20230105
  61. NADROPARIN CALCIUM [Concomitant]
     Active Substance: NADROPARIN CALCIUM
     Indication: Prophylaxis
     Dosage: ONGOING = CHECKED0.30 ML (MILLILITER; CM3)
     Dates: start: 20190208
  62. ONDANSETRON [Concomitant]
     Active Substance: ONDANSETRON
     Indication: Prophylaxis
     Dates: start: 20221208, end: 20230107
  63. ONDANSETRON [Concomitant]
     Active Substance: ONDANSETRON
     Dates: start: 20230209
  64. ONDANSETRON [Concomitant]
     Active Substance: ONDANSETRON
     Dates: start: 20221207, end: 20230105

REACTIONS (2)
  - Pneumothorax [Recovered/Resolved with Sequelae]
  - Pneumonia [Not Recovered/Not Resolved]

NARRATIVE: CASE EVENT DATE: 20221115
